FAERS Safety Report 24752872 (Version 1)
Quarter: 2024Q4

REPORT INFORMATION
  Report Type: Spontaneous
  Country: TN (occurrence: TN)
  Receive Date: 20241219
  Receipt Date: 20241219
  Transmission Date: 20250114
  Serious: Yes (Other)
  Sender: SANDOZ
  Company Number: TN-MLMSERVICE-20241205-PI279322-00218-1

PATIENT
  Age: 82 Year
  Sex: Male

DRUGS (2)
  1. METHOTREXATE [Suspect]
     Active Substance: METHOTREXATE
     Indication: Psoriasis
     Dosage: 15.000MG
     Route: 065
  2. METHOTREXATE [Suspect]
     Active Substance: METHOTREXATE
     Dosage: FIVE TABLETS EVERY TWO DAYS
     Route: 065

REACTIONS (4)
  - Mucocutaneous ulceration [Recovered/Resolved]
  - Bicytopenia [Recovered/Resolved]
  - Incorrect dosage administered [Recovered/Resolved]
  - Product dosage form confusion [Recovered/Resolved]
